FAERS Safety Report 8062122-6 (Version None)
Quarter: 2012Q1

REPORT INFORMATION
  Report Type: 
  Country: None (occurrence: None)
  Receive Date: 20120123
  Receipt Date: 20111220
  Transmission Date: 20120608
  Serious: Yes (Death)
  Sender: FDA-Public Use
  Company Number: DE-ELI_LILLY_AND_COMPANY-DE201112003328

PATIENT
  Sex: Female

DRUGS (1)
  1. EFFIENT [Suspect]

REACTIONS (2)
  - DEATH [None]
  - PRODUCT COUNTERFEIT [None]
